FAERS Safety Report 13905995 (Version 1)
Quarter: 2017Q3

REPORT INFORMATION
  Report Type: Spontaneous
  Country: US (occurrence: US)
  Receive Date: 20170825
  Receipt Date: 20170825
  Transmission Date: 20171127
  Serious: Yes (Disabling)
  Sender: FDA-Public Use
  Company Number: None

PATIENT
  Age: 70 Year
  Sex: Male
  Weight: 90 kg

DRUGS (15)
  1. CARALLUMA HERB [Concomitant]
  2. DIGESTIVE ENZYMES [Concomitant]
     Active Substance: UNSPECIFIED INGREDIENT
  3. MULTI-VITAMIN [Concomitant]
     Active Substance: .ALPHA.-TOCOPHEROL ACETATE, DL-\ASCORBIC ACID\CYANOCOBALAMIN\FLUORIDE ION\FOLIC ACID\NIACIN\PYRIDOXINE\RIBOFLAVIN\THIAMINE\VITAMIN A\VITAMIN D
  4. MIRAPEX [Suspect]
     Active Substance: PRAMIPEXOLE DIHYDROCHLORIDE
     Indication: RESTLESS LEGS SYNDROME
     Dosage: ?          QUANTITY:1 TABLET(S);?
     Route: 048
     Dates: start: 20170816, end: 20170824
  5. TIZANIDINE. [Concomitant]
     Active Substance: TIZANIDINE
  6. AMLODIPINE BESYLATE. [Concomitant]
     Active Substance: AMLODIPINE BESYLATE
  7. SOLUBLE +  INSOLUBLE FIBER [Concomitant]
  8. OXYCODONE [Concomitant]
     Active Substance: OXYCODONE
  9. GLUCOSAMINE CHONDROITIN MSN [Concomitant]
  10. EGCG GREEN TEA EXTRACT [Concomitant]
     Active Substance: DIETARY SUPPLEMENT
  11. VITAMIN D [Concomitant]
     Active Substance: CHOLECALCIFEROL
  12. BENAZAPRIL [Concomitant]
  13. ASPIRIN. [Concomitant]
     Active Substance: ASPIRIN
  14. 16 STRAIN PROBIOTIC [Concomitant]
  15. OMEGA W PLUS 100 [Concomitant]

REACTIONS (1)
  - Visual impairment [None]

NARRATIVE: CASE EVENT DATE: 20170817
